FAERS Safety Report 7683019-7 (Version None)
Quarter: 2011Q3

REPORT INFORMATION
  Report Type: 
  Country: None (occurrence: None)
  Receive Date: 20110812
  Receipt Date: 20110812
  Transmission Date: 20111222
  Serious: Yes (Life-Threatening)
  Sender: FDA-Public Use
  Company Number: None

PATIENT
  Sex: Male
  Weight: 54.4316 kg

DRUGS (1)
  1. ZYPREXA [Suspect]
     Indication: SCHIZOPHRENIA
     Dosage: 15 MG. 2 TABS AT BED ORAL 3 MONTHS
     Route: 048

REACTIONS (2)
  - CONVULSION [None]
  - PRODUCT QUALITY ISSUE [None]
